FAERS Safety Report 10296605 (Version 1)
Quarter: 2014Q3

REPORT INFORMATION
  Report Type: Spontaneous
  Country: US (occurrence: None)
  Receive Date: 20140708
  Receipt Date: 20140708
  Transmission Date: 20150326
  Serious: Yes (Hospitalization)
  Sender: FDA-Public Use
  Company Number: None

PATIENT
  Sex: Female
  Weight: 81.65 kg

DRUGS (7)
  1. MILK THISTLE [Concomitant]
     Active Substance: MILK THISTLE
  2. CYCLOBENZAPRINE GENERIC FOR FLEXERIL [Suspect]
     Active Substance: CYCLOBENZAPRINE
     Indication: BACK PAIN
     Dosage: CAN^T REMEMBER 2-3 DAYS LATER
  3. THYROID [Concomitant]
     Active Substance: LEVOTHYROXINE\LIOTHYRONINE
  4. CALCIUM [Concomitant]
     Active Substance: CALCIUM
  5. CYCLOBENZAPRINE GENERIC FOR FLEXERIL [Suspect]
     Active Substance: CYCLOBENZAPRINE
     Indication: SPINAL FRACTURE
     Dosage: CAN^T REMEMBER 2-3 DAYS LATER
  6. OTC MULTIVITAMINS [Concomitant]
  7. VITAMIN D [Concomitant]
     Active Substance: CHOLECALCIFEROL

REACTIONS (4)
  - Chest pain [None]
  - Vomiting [None]
  - Back pain [None]
  - Abdominal pain upper [None]
